FAERS Safety Report 21297092 (Version 2)
Quarter: 2022Q4

REPORT INFORMATION
  Report Type: Report from Study
  Country: DO (occurrence: DO)
  Receive Date: 20220906
  Receipt Date: 20221007
  Transmission Date: 20230112
  Serious: Yes (Disabling)
  Sender: FDA-Public Use
  Company Number: DO-NOVARTISPH-NVSC2022DO147040

PATIENT
  Age: 61 Year
  Sex: Female
  Weight: 68.03 kg

DRUGS (4)
  1. XOLAIR [Suspect]
     Active Substance: OMALIZUMAB
     Indication: Chronic spontaneous urticaria
     Dosage: 300 MG, QMO
     Route: 058
     Dates: start: 20210927
  2. XOLAIR [Suspect]
     Active Substance: OMALIZUMAB
     Indication: Urticaria
     Dosage: 300 MG
     Route: 065
     Dates: start: 202203
  3. XOLAIR [Suspect]
     Active Substance: OMALIZUMAB
     Dosage: 300 MG, QMO
     Route: 058
     Dates: start: 20220303, end: 20220504
  4. METHOTREXATE [Suspect]
     Active Substance: METHOTREXATE
     Indication: Psoriasis
     Dosage: UNK (MANY YEARS AGO)
     Route: 065

REACTIONS (13)
  - Peripheral swelling [Recovering/Resolving]
  - Haemoglobin decreased [Unknown]
  - Haematocrit decreased [Unknown]
  - COVID-19 [Unknown]
  - Weight decreased [Unknown]
  - Anaemia [Unknown]
  - Fluid retention [Unknown]
  - Decreased appetite [Unknown]
  - Pain [Unknown]
  - Gait inability [Recovering/Resolving]
  - Illness [Unknown]
  - Pain in extremity [Unknown]
  - Product availability issue [Unknown]

NARRATIVE: CASE EVENT DATE: 20220201
